FAERS Safety Report 24296540 (Version 4)
Quarter: 2024Q4

REPORT INFORMATION
  Report Type: Report from Study
  Country: US (occurrence: US)
  Receive Date: 20240909
  Receipt Date: 20241109
  Transmission Date: 20250114
  Serious: Yes (Hospitalization, Other)
  Sender: AUROBINDO
  Company Number: US-AUROBINDO-AUR-APL-2024-029459

PATIENT
  Age: 57 Year
  Sex: Male
  Weight: 87.2 kg

DRUGS (2)
  1. BELINOSTAT [Suspect]
     Active Substance: BELINOSTAT
     Indication: Product used for unknown indication
     Dosage: 1314 MILLIGRAM
     Route: 065
     Dates: end: 20240812
  2. TAZEMETOSTAT [Suspect]
     Active Substance: TAZEMETOSTAT
     Indication: Product used for unknown indication
     Dosage: 200 MILLIGRAM
     Route: 065
     Dates: end: 20240812

REACTIONS (10)
  - Pyrexia [Unknown]
  - Aspartate aminotransferase increased [Unknown]
  - Blood bilirubin increased [Unknown]
  - Neutrophil count decreased [Unknown]
  - White blood cell count decreased [Unknown]
  - Alanine aminotransferase increased [Unknown]
  - Hypomagnesaemia [Unknown]
  - Pruritus [Unknown]
  - Constipation [Unknown]
  - Hyperglycaemia [Unknown]

NARRATIVE: CASE EVENT DATE: 20240506
